FAERS Safety Report 21906786 (Version 1)
Quarter: 2023Q1

REPORT INFORMATION
  Report Type: Spontaneous
  Country: US (occurrence: US)
  Receive Date: 20230125
  Receipt Date: 20230125
  Transmission Date: 20230418
  Serious: Yes (Other)
  Sender: FDA-Public Use
  Company Number: US-002147023-NVSC2023US013349

PATIENT
  Age: 62 Year
  Sex: Female

DRUGS (1)
  1. CLOFAZIMINE [Suspect]
     Active Substance: CLOFAZIMINE
     Indication: Atypical mycobacterial infection
     Dosage: 100 MG, QD
     Route: 065

REACTIONS (4)
  - Mycobacterium avium complex infection [Unknown]
  - Pathogen resistance [Unknown]
  - Pulmonary cavitation [Unknown]
  - Condition aggravated [Unknown]
